FAERS Safety Report 6796214-6 (Version None)
Quarter: 2010Q2

REPORT INFORMATION
  Report Type: 
  Country: None (occurrence: None)
  Receive Date: 20100625
  Receipt Date: 20100617
  Transmission Date: 20101027
  Serious: Yes (Life-Threatening, Other)
  Sender: FDA-Public Use
  Company Number: JP-ROCHE-708293

PATIENT
  Sex: Male
  Weight: 63 kg

DRUGS (4)
  1. AVASTIN [Suspect]
     Indication: LUNG ADENOCARCINOMA
     Route: 041
     Dates: start: 20100324, end: 20100526
  2. CODEINE SULFATE [Suspect]
     Indication: COUGH
     Route: 048
     Dates: start: 20100326
  3. CARBOPLATIN [Concomitant]
     Dosage: DOSE WAS UNCERTAIN
     Route: 041
  4. TAXOTERE [Concomitant]
     Dosage: DOSE WAS UNCERTAIN
     Route: 041

REACTIONS (7)
  - CONSTIPATION [None]
  - COUGH [None]
  - DIVERTICULITIS [None]
  - ENTERITIS INFECTIOUS [None]
  - FEBRILE NEUTROPENIA [None]
  - ILEUS PARALYTIC [None]
  - LARGE INTESTINE PERFORATION [None]
